FAERS Safety Report 7428688-1 (Version None)
Quarter: 2011Q2

REPORT INFORMATION
  Report Type: 
  Country: None (occurrence: None)
  Receive Date: 20110421
  Receipt Date: 20110415
  Transmission Date: 20111010
  Serious: No
  Sender: FDA-Public Use
  Company Number: US-BIOGENIDEC-2011BI014305

PATIENT
  Sex: Female

DRUGS (2)
  1. AVONEX [Suspect]
     Indication: MULTIPLE SCLEROSIS
     Route: 030
     Dates: start: 19991101
  2. AVONEX [Suspect]
     Route: 030

REACTIONS (6)
  - TREMOR [None]
  - NAUSEA [None]
  - FALL [None]
  - VOMITING [None]
  - BALANCE DISORDER [None]
  - NASOPHARYNGITIS [None]
